FAERS Safety Report 25605495 (Version 2)
Quarter: 2025Q4

REPORT INFORMATION
  Report Type: Report from Study
  Country: EU (occurrence: EU)
  Receive Date: 20250725
  Receipt Date: 20251114
  Transmission Date: 20260119
  Serious: Yes (Other)
  Sender: MYLAN
  Company Number: EU-MYLANLABS-2025M1061719

PATIENT
  Sex: Female

DRUGS (2)
  1. GLATIRAMER [Suspect]
     Active Substance: GLATIRAMER
     Indication: Multiple sclerosis
     Dosage: UNK UNK, 3XW, (40 MILLIGRAM PER MILLILITR)
     Dates: start: 20250423, end: 20250707
  2. GLATIRAMER [Suspect]
     Active Substance: GLATIRAMER
     Dosage: UNK UNK, 3XW, (40 MILLIGRAM PER MILLILITR)
     Dates: start: 20250917, end: 20251110

REACTIONS (4)
  - Seizure [Recovering/Resolving]
  - Burning sensation [Recovering/Resolving]
  - Hypersensitivity [Recovering/Resolving]
  - Erythema [Recovering/Resolving]

NARRATIVE: CASE EVENT DATE: 20250716
